FAERS Safety Report 8962672 (Version 2)
Quarter: 2013Q1

REPORT INFORMATION
  Report Type: Spontaneous
  Country: BR (occurrence: BR)
  Receive Date: 20121214
  Receipt Date: 20130116
  Transmission Date: 20140127
  Serious: Yes (Hospitalization, Other)
  Sender: FDA-Public Use
  Company Number: PHHY2012BR113427

PATIENT
  Age: 41 None
  Sex: Female
  Weight: 74 kg

DRUGS (3)
  1. SANDOSTATIN LAR [Suspect]
     Indication: ACROMEGALY
     Dosage: 40 MG EVERY 28 DAYS
     Dates: start: 201206
  2. CABERGOLINE [Concomitant]
     Indication: ACROMEGALY
     Dosage: 4 DF, QW
     Route: 048
     Dates: start: 201210
  3. METFORMIN [Concomitant]
     Indication: DIABETES PROPHYLAXIS
     Dosage: 4 TABLETS DAILY
     Route: 048
     Dates: start: 2011

REACTIONS (4)
  - Nephrolithiasis [Unknown]
  - Kidney enlargement [Not Recovered/Not Resolved]
  - Kidney infection [Not Recovered/Not Resolved]
  - Application site pain [Recovering/Resolving]
